FAERS Safety Report 20957411 (Version 1)
Quarter: 2022Q2

REPORT INFORMATION
  Report Type: Spontaneous
  Country: US (occurrence: None)
  Receive Date: 20220614
  Receipt Date: 20220614
  Transmission Date: 20220721
  Serious: No
  Sender: FDA-Public Use
  Company Number: None

PATIENT
  Sex: Female

DRUGS (1)
  1. STELARA [Suspect]
     Active Substance: USTEKINUMAB
     Indication: Psoriasis
     Dosage: OTHER FREQUENCY : EVERY3MONTHS;?
     Route: 058
     Dates: start: 202112

REACTIONS (2)
  - Breast cancer [None]
  - Therapy cessation [None]
